FAERS Safety Report 15386668 (Version 1)
Quarter: 2018Q3

REPORT INFORMATION
  Report Type: Spontaneous
  Country: TW (occurrence: TW)
  Receive Date: 20180914
  Receipt Date: 20180914
  Transmission Date: 20181010
  Serious: Yes (Other)
  Sender: FDA-Public Use
  Company Number: TW-BAYER-2018-166830

PATIENT
  Age: 53 Year
  Sex: Female

DRUGS (3)
  1. STIVARGA [Suspect]
     Active Substance: REGORAFENIB
     Indication: ADENOCARCINOMA OF COLON
     Dosage: 80 MG/DAY
     Route: 048
     Dates: start: 2015, end: 20151115
  2. STIVARGA [Suspect]
     Active Substance: REGORAFENIB
     Indication: ADENOCARCINOMA OF COLON
     Dosage: 120 MG/DAY
     Route: 048
     Dates: start: 2015, end: 2015
  3. STIVARGA [Suspect]
     Active Substance: REGORAFENIB
     Indication: ADENOCARCINOMA OF COLON
     Dosage: 160 MG/DAY
     Route: 048
     Dates: start: 20151013

REACTIONS (7)
  - Small intestinal resection [None]
  - Jejunostomy [None]
  - Intestinal metastasis [None]
  - Gastrointestinal anastomotic leak [Recovering/Resolving]
  - Colon cancer metastatic [None]
  - Tumour necrosis [None]
  - Hepatic enzyme increased [None]
